FAERS Safety Report 8460402-3 (Version None)
Quarter: 2012Q2

REPORT INFORMATION
  Report Type: 
  Country: None (occurrence: None)
  Receive Date: 20120622
  Receipt Date: 20120614
  Transmission Date: 20120825
  Serious: Yes (Other)
  Sender: FDA-Public Use
  Company Number: US-ELI_LILLY_AND_COMPANY-US201206005429

PATIENT
  Sex: Female

DRUGS (2)
  1. LETAIRIS [Concomitant]
     Dosage: 10 MG, UNK
     Route: 048
     Dates: start: 20090714
  2. ADCIRCA [Suspect]
     Dosage: UNK
     Dates: start: 20120608

REACTIONS (5)
  - DYSPHAGIA [None]
  - UNEVALUABLE EVENT [None]
  - HEADACHE [None]
  - THROAT TIGHTNESS [None]
  - CHOKING [None]
